FAERS Safety Report 9831947 (Version 1)
Quarter: 2014Q1

REPORT INFORMATION
  Report Type: Spontaneous
  Country: FR (occurrence: FR)
  Receive Date: 20140121
  Receipt Date: 20140121
  Transmission Date: 20141002
  Serious: Yes (Other)
  Sender: FDA-Public Use
  Company Number: FR-ASTELLAS-2014US000586

PATIENT
  Age: 74 Year
  Sex: Male

DRUGS (9)
  1. TARCEVA [Suspect]
     Indication: LUNG NEOPLASM MALIGNANT
     Dosage: 100 MG, UID/QD
     Route: 065
  2. TARCEVA [Suspect]
     Dosage: UNK
     Route: 065
  3. ALLOPURINOL [Concomitant]
     Indication: HYPERURICAEMIA
     Dosage: 200 MG, UID/QD
     Route: 048
  4. LOPRESSOR [Concomitant]
     Indication: HYPERTENSION
     Dosage: 200 MG, UID/QD
     Route: 048
  5. KARDEGIC [Concomitant]
     Indication: PRODUCT USED FOR UNKNOWN INDICATION
     Dosage: 75 MG, UID/QD
     Route: 048
  6. IRBESARTAN [Concomitant]
     Indication: HYPERTENSION
     Dosage: 150 MG, UID/QD
     Route: 048
  7. SIMVASTATINE [Concomitant]
     Indication: HYPERCHOLESTEROLAEMIA
     Dosage: 20 MG, UID/QD
     Route: 048
  8. SPIRIVA [Concomitant]
     Indication: INHALATION THERAPY
     Dosage: 1 DF, UID/QD
     Route: 048
  9. LOPERAMIDE [Concomitant]
     Indication: DIARRHOEA
     Dosage: 1 DF, UID/QD
     Route: 048

REACTIONS (1)
  - Psoriasis [Not Recovered/Not Resolved]
